FAERS Safety Report 10522822 (Version 8)
Quarter: 2016Q1

REPORT INFORMATION
  Report Type: Spontaneous
  Country: JP (occurrence: JP)
  Receive Date: 20141016
  Receipt Date: 20160211
  Transmission Date: 20160525
  Serious: Yes (Hospitalization)
  Sender: FDA-Public Use
  Company Number: JP-CELGENE-087-21880-14074110

PATIENT
  Age: 59 Year
  Sex: Male
  Weight: 94.8 kg

DRUGS (91)
  1. MIYA-BM [Concomitant]
     Active Substance: CLOSTRIDIUM BUTYRICUM SPORES STRAIN M-55
     Route: 065
     Dates: start: 20150916
  2. RABEPRAZOLE SODIUM. [Concomitant]
     Active Substance: RABEPRAZOLE SODIUM
     Indication: PRODUCT USED FOR UNKNOWN INDICATION
     Route: 065
     Dates: start: 20140802
  3. KAIGEN [Concomitant]
     Active Substance: ACETAMINOPHEN\CAFFEINE\CINNAMON\GINGER\GLYCYRRHIZA GLABRA\METHYLEPHEDRINE HYDROCHLORIDE, (+/-)-
     Route: 065
     Dates: start: 20151208, end: 20151208
  4. CAEBOCISTEINE [Concomitant]
     Indication: ADVERSE EVENT
     Route: 065
     Dates: start: 20150107
  5. REVLIMID [Suspect]
     Active Substance: LENALIDOMIDE
     Route: 048
  6. LIPITOR [Concomitant]
     Active Substance: ATORVASTATIN CALCIUM
     Indication: PRODUCT USED FOR UNKNOWN INDICATION
     Route: 065
     Dates: start: 2003
  7. ACETAMINOPHEN. [Concomitant]
     Active Substance: ACETAMINOPHEN
     Route: 065
     Dates: start: 20140914, end: 20140915
  8. LEVOFLOXACIN HEMIHYDRATE [Concomitant]
     Active Substance: LEVOFLOXACIN
     Route: 065
     Dates: start: 20150403, end: 20150407
  9. MOMETASONE FUROATE. [Concomitant]
     Active Substance: MOMETASONE FUROATE
     Indication: PRODUCT USED FOR UNKNOWN INDICATION
     Route: 065
     Dates: start: 201106
  10. ACETYLSALICYLIC ACID [Concomitant]
     Active Substance: ASPIRIN
     Indication: PRODUCT USED FOR UNKNOWN INDICATION
     Route: 065
     Dates: start: 20120725
  11. SOLACET F [Concomitant]
     Route: 065
     Dates: start: 20140803, end: 20140803
  12. KCL [Concomitant]
     Active Substance: POTASSIUM CHLORIDE
     Indication: ADVERSE EVENT
     Route: 050
     Dates: start: 20140721, end: 20140721
  13. MIYA-BM [Concomitant]
     Active Substance: CLOSTRIDIUM BUTYRICUM SPORES STRAIN M-55
     Indication: ADVERSE EVENT
     Route: 065
     Dates: start: 20140514, end: 20140722
  14. MIYA-BM [Concomitant]
     Active Substance: CLOSTRIDIUM BUTYRICUM SPORES STRAIN M-55
     Route: 065
     Dates: start: 20140730, end: 20140820
  15. MIYA-BM [Concomitant]
     Active Substance: CLOSTRIDIUM BUTYRICUM SPORES STRAIN M-55
     Route: 065
     Dates: start: 20150121, end: 20150129
  16. PHELLOBERIN [Concomitant]
     Active Substance: BERBERINE\GERANIUM
     Indication: ADVERSE EVENT
     Route: 065
     Dates: start: 20140730, end: 20140815
  17. KAIGEN [Concomitant]
     Active Substance: ACETAMINOPHEN\CAFFEINE\CINNAMON\GINGER\GLYCYRRHIZA GLABRA\METHYLEPHEDRINE HYDROCHLORIDE, (+/-)-
     Route: 065
     Dates: start: 20141231, end: 20141231
  18. KAIGEN [Concomitant]
     Active Substance: ACETAMINOPHEN\CAFFEINE\CINNAMON\GINGER\GLYCYRRHIZA GLABRA\METHYLEPHEDRINE HYDROCHLORIDE, (+/-)-
     Route: 065
     Dates: start: 20150607, end: 20150609
  19. KAIGEN [Concomitant]
     Active Substance: ACETAMINOPHEN\CAFFEINE\CINNAMON\GINGER\GLYCYRRHIZA GLABRA\METHYLEPHEDRINE HYDROCHLORIDE, (+/-)-
     Route: 065
     Dates: start: 20150917, end: 20150922
  20. MEDICON [Concomitant]
     Active Substance: DEXTROMETHORPHAN HYDROBROMIDE
     Indication: ADVERSE EVENT
     Route: 065
     Dates: start: 20150104, end: 20150107
  21. EPRAZINONE HYDROCHLORIDE [Concomitant]
     Active Substance: EPRAZINONE HYDROCHLORIDE
     Route: 065
     Dates: start: 20150624
  22. EPRAZINONE HYDROCHLORIDE [Concomitant]
     Active Substance: EPRAZINONE HYDROCHLORIDE
     Route: 065
     Dates: start: 20140924, end: 20141001
  23. AZUNOL [Concomitant]
     Active Substance: SODIUM GUALENATE
     Indication: ADVERSE EVENT
     Route: 065
     Dates: start: 20150722, end: 20150726
  24. REVLIMID [Suspect]
     Active Substance: LENALIDOMIDE
     Route: 048
     Dates: start: 20120725
  25. ELOTUZUMAB [Suspect]
     Active Substance: ELOTUZUMAB
     Indication: PLASMA CELL MYELOMA RECURRENT
     Route: 041
     Dates: start: 20120709, end: 20120709
  26. ALLEGRA [Concomitant]
     Active Substance: FEXOFENADINE HYDROCHLORIDE
     Route: 065
     Dates: start: 20121101
  27. ACETAMINOPHEN. [Concomitant]
     Active Substance: ACETAMINOPHEN
     Indication: ADVERSE EVENT
     Route: 065
     Dates: start: 20130223, end: 20130314
  28. LEVOFLOXACIN HEMIHYDRATE [Concomitant]
     Active Substance: LEVOFLOXACIN
     Route: 048
     Dates: start: 20140917, end: 20140924
  29. LEVOFLOXACIN HEMIHYDRATE [Concomitant]
     Active Substance: LEVOFLOXACIN
     Route: 065
     Dates: start: 20150624, end: 20150630
  30. LANSOPRAZOLE. [Concomitant]
     Active Substance: LANSOPRAZOLE
     Indication: PRODUCT USED FOR UNKNOWN INDICATION
     Route: 065
     Dates: start: 20120725
  31. FAMOTIDINE. [Concomitant]
     Active Substance: FAMOTIDINE
     Indication: ADVERSE EVENT
     Route: 065
     Dates: start: 20140802, end: 20140802
  32. EPRAZINONE HYDROCHLORIDE [Concomitant]
     Active Substance: EPRAZINONE HYDROCHLORIDE
     Route: 065
     Dates: start: 20151209, end: 20151223
  33. DORZOLAMIDE HYDROCHLORIDE-TIMOLOL MALEATE [Concomitant]
     Active Substance: DORZOLAMIDE HYDROCHLORIDE\TIMOLOL MALEATE
     Indication: PRODUCT USED FOR UNKNOWN INDICATION
     Route: 065
     Dates: start: 20151002
  34. DEXAMETHASONE. [Suspect]
     Active Substance: DEXAMETHASONE
     Indication: PLASMA CELL MYELOMA RECURRENT
     Route: 041
     Dates: start: 20120709, end: 20120709
  35. BAYASPIRIN [Concomitant]
     Active Substance: ASPIRIN
     Indication: PRODUCT USED FOR UNKNOWN INDICATION
     Route: 065
     Dates: start: 20120725
  36. FULMETA [Concomitant]
     Active Substance: MOMETASONE
     Indication: PRODUCT USED FOR UNKNOWN INDICATION
     Route: 065
     Dates: start: 201106
  37. TENELIGIPTIN HYDROBROMIDE HYDRATE [Concomitant]
     Route: 065
     Dates: start: 20141031
  38. HYDROXYZINE HYDROCHLORIDE. [Concomitant]
     Active Substance: HYDROXYZINE HYDROCHLORIDE
     Indication: ADVERSE EVENT
     Route: 065
     Dates: start: 20140720, end: 20140725
  39. KAIGEN [Concomitant]
     Active Substance: ACETAMINOPHEN\CAFFEINE\CINNAMON\GINGER\GLYCYRRHIZA GLABRA\METHYLEPHEDRINE HYDROCHLORIDE, (+/-)-
     Indication: ADVERSE EVENT
     Route: 065
     Dates: start: 20140914, end: 20140916
  40. KAIGEN [Concomitant]
     Active Substance: ACETAMINOPHEN\CAFFEINE\CINNAMON\GINGER\GLYCYRRHIZA GLABRA\METHYLEPHEDRINE HYDROCHLORIDE, (+/-)-
     Route: 065
     Dates: start: 20141205, end: 20141210
  41. PL [Concomitant]
     Active Substance: ACETAMINOPHEN\CAFFEINE\PROMETHAZINE\SALICYLAMIDE
     Route: 065
     Dates: start: 20150610, end: 20150615
  42. LENADEX [Suspect]
     Active Substance: DEXAMETHASONE ACETATE
     Indication: PLASMA CELL MYELOMA RECURRENT
     Route: 048
     Dates: start: 20120725, end: 20130319
  43. ACETAMINOPHEN. [Concomitant]
     Active Substance: ACETAMINOPHEN
     Route: 065
     Dates: start: 20130721, end: 20130723
  44. ACETAMINOPHEN. [Concomitant]
     Active Substance: ACETAMINOPHEN
     Route: 065
     Dates: start: 20140215, end: 20140215
  45. METOCLOPRAMIDE HYDROCHLORIDE. [Concomitant]
     Active Substance: METOCLOPRAMIDE HYDROCHLORIDE
     Indication: ADVERSE EVENT
     Route: 065
     Dates: start: 20140803, end: 20140803
  46. KAIGEN [Concomitant]
     Active Substance: ACETAMINOPHEN\CAFFEINE\CINNAMON\GINGER\GLYCYRRHIZA GLABRA\METHYLEPHEDRINE HYDROCHLORIDE, (+/-)-
     Route: 065
     Dates: start: 20150331, end: 20150331
  47. PL [Concomitant]
     Active Substance: ACETAMINOPHEN\CAFFEINE\PROMETHAZINE\SALICYLAMIDE
     Indication: ADVERSE EVENT
     Route: 065
     Dates: start: 20140305, end: 20140312
  48. INAVIR [Concomitant]
     Active Substance: LANINAMIVIR
     Indication: ADVERSE EVENT
     Route: 065
     Dates: start: 20150104, end: 20150104
  49. EPRAZINONE HYDROCHLORIDE [Concomitant]
     Active Substance: EPRAZINONE HYDROCHLORIDE
     Indication: ADVERSE EVENT
     Route: 065
     Dates: start: 20150107
  50. CAEBOCISTEINE [Concomitant]
     Route: 065
     Dates: start: 20150624
  51. REVLIMID [Suspect]
     Active Substance: LENALIDOMIDE
     Indication: PLASMA CELL MYELOMA RECURRENT
     Route: 048
     Dates: start: 20120725
  52. REVLIMID [Suspect]
     Active Substance: LENALIDOMIDE
     Indication: PLASMA CELL MYELOMA
     Route: 048
     Dates: start: 20120822, end: 20120911
  53. KENALOG [Concomitant]
     Active Substance: TRIAMCINOLONE ACETONIDE
     Indication: ADVERSE EVENT
     Route: 065
     Dates: start: 20130109
  54. ZYLORIC [Concomitant]
     Active Substance: ALLOPURINOL
     Indication: PRODUCT USED FOR UNKNOWN INDICATION
     Route: 065
     Dates: start: 2003
  55. ACETAMINOPHEN. [Concomitant]
     Active Substance: ACETAMINOPHEN
     Route: 065
     Dates: start: 20131005
  56. ACETAMINOPHEN. [Concomitant]
     Active Substance: ACETAMINOPHEN
     Route: 065
     Dates: start: 20131122, end: 20131123
  57. ACETAMINOPHEN. [Concomitant]
     Active Substance: ACETAMINOPHEN
     Route: 065
     Dates: start: 20140720, end: 20140725
  58. LEVOFLOXACIN HEMIHYDRATE [Concomitant]
     Active Substance: LEVOFLOXACIN
     Route: 065
     Dates: start: 20150121, end: 20150123
  59. TRIAMCINOLONE ACETONIDE. [Concomitant]
     Active Substance: TRIAMCINOLONE ACETONIDE
     Indication: PRODUCT USED FOR UNKNOWN INDICATION
     Route: 065
     Dates: start: 20130109
  60. AMLODIPINE BESYLATE. [Concomitant]
     Active Substance: AMLODIPINE BESYLATE
     Indication: PRODUCT USED FOR UNKNOWN INDICATION
     Route: 065
     Dates: start: 2003
  61. SOLACET F [Concomitant]
     Route: 065
     Dates: start: 20140720, end: 20140722
  62. SOLDEM 3A [Concomitant]
     Active Substance: CARBOHYDRATES\POTASSIUM CHLORIDE\SODIUM CHLORIDE\SODIUM LACTATE
     Indication: ADVERSE EVENT
     Route: 065
     Dates: start: 20140720, end: 20140730
  63. LACTEC [Concomitant]
     Active Substance: CALCIUM CHLORIDE ANHYDROUS\POTASSIUM CHLORIDE\SODIUM CHLORIDE\SODIUM LACTATE
     Indication: ADVERSE EVENT
     Route: 050
     Dates: start: 20140721, end: 20140721
  64. POTASSIUM ASPARTATE [Concomitant]
     Active Substance: POTASSIUM ASPARTATE
     Indication: ADVERSE EVENT
     Route: 050
     Dates: start: 20140721, end: 20140728
  65. MAALOX ANTACID [Concomitant]
     Active Substance: ALUMINUM HYDROXIDE\DIMETHICONE\MAGNESIUM HYDROXIDE
     Indication: ADVERSE EVENT
     Route: 065
     Dates: start: 20140802, end: 20140802
  66. KAIGEN [Concomitant]
     Active Substance: ACETAMINOPHEN\CAFFEINE\CINNAMON\GINGER\GLYCYRRHIZA GLABRA\METHYLEPHEDRINE HYDROCHLORIDE, (+/-)-
     Route: 065
     Dates: start: 20150622, end: 20150623
  67. CAEBOCISTEINE [Concomitant]
     Route: 065
     Dates: start: 20151209, end: 20151223
  68. ELOTUZUMAB [Suspect]
     Active Substance: ELOTUZUMAB
     Indication: PLASMA CELL MYELOMA
     Route: 041
     Dates: start: 20120725, end: 20120725
  69. ALLEGRA [Concomitant]
     Active Substance: FEXOFENADINE HYDROCHLORIDE
     Indication: ADVERSE EVENT
     Route: 065
     Dates: start: 20121026, end: 20121031
  70. TENELIGIPTIN HYDROBROMIDE HYDRATE [Concomitant]
     Indication: ADVERSE EVENT
     Route: 065
     Dates: start: 20140112, end: 20140809
  71. TENELIGIPTIN HYDROBROMIDE HYDRATE [Concomitant]
     Route: 065
     Dates: start: 20140124
  72. ZOMETA [Concomitant]
     Active Substance: ZOLEDRONIC ACID
     Indication: PRODUCT USED FOR UNKNOWN INDICATION
     Route: 065
     Dates: start: 20110907
  73. LEVOFLOXACIN HEMIHYDRATE [Concomitant]
     Active Substance: LEVOFLOXACIN
     Indication: PRODUCT USED FOR UNKNOWN INDICATION
     Route: 048
     Dates: start: 20140717, end: 20140720
  74. LEVOFLOXACIN HEMIHYDRATE [Concomitant]
     Active Substance: LEVOFLOXACIN
     Route: 065
     Dates: start: 20141210, end: 20141210
  75. LEVOFLOXACIN HEMIHYDRATE [Concomitant]
     Active Substance: LEVOFLOXACIN
     Route: 065
     Dates: start: 20151209, end: 20151219
  76. MIYA-BM [Concomitant]
     Active Substance: CLOSTRIDIUM BUTYRICUM SPORES STRAIN M-55
     Route: 065
     Dates: start: 20140724, end: 20140731
  77. KAIGEN [Concomitant]
     Active Substance: ACETAMINOPHEN\CAFFEINE\CINNAMON\GINGER\GLYCYRRHIZA GLABRA\METHYLEPHEDRINE HYDROCHLORIDE, (+/-)-
     Route: 065
     Dates: start: 20150403, end: 20150408
  78. CEFDINIR. [Concomitant]
     Active Substance: CEFDINIR
  79. FLUOROMETHOLONE. [Concomitant]
     Active Substance: FLUOROMETHOLONE
     Indication: PRODUCT USED FOR UNKNOWN INDICATION
     Route: 065
     Dates: start: 20151009
  80. ELOTUZUMAB [Suspect]
     Active Substance: ELOTUZUMAB
     Route: 041
     Dates: start: 20120725, end: 20130326
  81. FLURBIPROFEN. [Concomitant]
     Active Substance: FLURBIPROFEN
     Indication: PRODUCT USED FOR UNKNOWN INDICATION
     Route: 065
     Dates: start: 20130905
  82. BROTIZOLAM [Concomitant]
     Active Substance: BROTIZOLAM
     Indication: ADVERSE EVENT
     Route: 065
     Dates: start: 20130918
  83. ACETAMINOPHEN. [Concomitant]
     Active Substance: ACETAMINOPHEN
     Route: 065
     Dates: start: 20150609, end: 20150609
  84. KAIGEN [Concomitant]
     Active Substance: ACETAMINOPHEN\CAFFEINE\CINNAMON\GINGER\GLYCYRRHIZA GLABRA\METHYLEPHEDRINE HYDROCHLORIDE, (+/-)-
     Route: 065
     Dates: start: 20141011, end: 20141013
  85. PL [Concomitant]
     Active Substance: ACETAMINOPHEN\CAFFEINE\PROMETHAZINE\SALICYLAMIDE
     Route: 065
     Dates: start: 20140915, end: 20141022
  86. DEXAMETHASONE. [Suspect]
     Active Substance: DEXAMETHASONE
     Indication: PLASMA CELL MYELOMA
     Route: 041
     Dates: start: 20120725, end: 20130326
  87. TAKEPRON [Concomitant]
     Active Substance: LANSOPRAZOLE
     Indication: PRODUCT USED FOR UNKNOWN INDICATION
     Route: 065
     Dates: start: 20120725, end: 20140624
  88. NORVASC [Concomitant]
     Active Substance: AMLODIPINE BESYLATE
     Indication: PRODUCT USED FOR UNKNOWN INDICATION
     Route: 065
     Dates: start: 2003
  89. SHAKUYAKUKANZOTO [Concomitant]
     Active Substance: HERBALS
     Indication: PRODUCT USED FOR UNKNOWN INDICATION
     Route: 065
     Dates: start: 20130529
  90. ALLOPURINOL. [Concomitant]
     Active Substance: ALLOPURINOL
     Indication: PRODUCT USED FOR UNKNOWN INDICATION
     Route: 065
     Dates: start: 2003
  91. SOLACET F [Concomitant]
     Indication: ADVERSE EVENT
     Route: 065
     Dates: start: 20140625, end: 20140625

REACTIONS (1)
  - Colitis [Recovered/Resolved]

NARRATIVE: CASE EVENT DATE: 20140720
